FAERS Safety Report 8069337-1 (Version None)
Quarter: 2012Q1

REPORT INFORMATION
  Report Type: 
  Country: None (occurrence: None)
  Receive Date: 20120125
  Receipt Date: 20120120
  Transmission Date: 20120608
  Serious: Yes (Other)
  Sender: FDA-Public Use
  Company Number: NL-AMGEN-NLDSP2012004348

PATIENT
  Age: 91 Year
  Sex: Male

DRUGS (3)
  1. NEULASTA [Suspect]
     Indication: CHEMOTHERAPY
     Dosage: UNK
     Dates: end: 20111210
  2. ANTINEOPLASTIC AGENTS [Concomitant]
     Indication: LEUKAEMIA
  3. NEUPOGEN [Suspect]
     Indication: CHEMOTHERAPY

REACTIONS (2)
  - NO THERAPEUTIC RESPONSE [None]
  - BONE PAIN [None]
